FAERS Safety Report 5091196-X (Version None)
Quarter: 2006Q3

REPORT INFORMATION
  Report Type: 
  Country: None (occurrence: None)
  Receive Date: 20060824
  Receipt Date: 20060811
  Transmission Date: 20061208
  Serious: Yes (Other)
  Sender: FDA-Public Use
  Company Number: 2006098357

PATIENT
  Sex: Male

DRUGS (1)
  1. ZITHROMAX [Suspect]

REACTIONS (3)
  - ARTHRITIS [None]
  - BONE DISORDER [None]
  - INFUSION SITE REACTION [None]
